FAERS Safety Report 12442596 (Version 4)
Quarter: 2018Q1

REPORT INFORMATION
  Report Type: Spontaneous
  Country: IL (occurrence: IL)
  Receive Date: 20160607
  Receipt Date: 20180221
  Transmission Date: 20180508
  Serious: Yes (Other)
  Sender: FDA-Public Use
  Company Number: IL-SA-2016SA104003

PATIENT
  Age: 57 Year
  Sex: Male

DRUGS (5)
  1. AUBAGIO [Suspect]
     Active Substance: TERIFLUNOMIDE
     Indication: MULTIPLE SCLEROSIS
     Route: 048
     Dates: start: 20140624, end: 20160530
  2. TOVIAZ [Concomitant]
     Active Substance: FESOTERODINE FUMARATE
  3. CIPRALEX [Concomitant]
     Active Substance: ESCITALOPRAM OXALATE
  4. ELTROXIN [Concomitant]
     Active Substance: LEVOTHYROXINE
  5. PROVIGIL [Concomitant]
     Active Substance: MODAFINIL

REACTIONS (3)
  - Pain [Recovering/Resolving]
  - Herpes zoster [Recovering/Resolving]
  - Rash [Recovering/Resolving]

NARRATIVE: CASE EVENT DATE: 20160527
